FAERS Safety Report 9789276 (Version 3)
Quarter: 2015Q4

REPORT INFORMATION
  Report Type: Report from Study
  Country: US (occurrence: US)
  Receive Date: 20131230
  Receipt Date: 20151029
  Transmission Date: 20160305
  Serious: Yes (Other)
  Sender: FDA-Public Use
  Company Number: US-ROCHE-1327006

PATIENT
  Age: 16 Year
  Sex: Male
  Weight: 106.24 kg

DRUGS (8)
  1. SINGULAIR [Concomitant]
     Active Substance: MONTELUKAST SODIUM
  2. AZELASTINE [Concomitant]
     Active Substance: AZELASTINE
     Indication: ASTHMA
     Dosage: 1, 2 SPRAY.  ROUTE: EN
     Route: 065
  3. XOLAIR [Suspect]
     Active Substance: OMALIZUMAB
     Route: 058
  4. ZETONNA [Concomitant]
     Active Substance: CICLESONIDE
     Indication: ASTHMA
     Dosage: ROUTE:EN  DOSE 1 PUFF, FREQUENCY:4 DAYS
     Route: 065
  5. ALBUTEROL. [Concomitant]
     Active Substance: ALBUTEROL
     Indication: ASTHMA
     Dosage: 2 PUFFS 94-6,? INHALE AS REQUIRED
     Route: 065
  6. MONTELUKAST [Concomitant]
     Active Substance: MONTELUKAST SODIUM
     Indication: ASTHMA
     Route: 048
     Dates: start: 20130426
  7. XOLAIR [Suspect]
     Active Substance: OMALIZUMAB
     Indication: ASTHMA
     Route: 058
     Dates: start: 20130611, end: 20130611
  8. DULERA [Concomitant]
     Active Substance: FORMOTEROL FUMARATE DIHYDRATE\MOMETASONE FUROATE
     Indication: ASTHMA
     Dosage: DOSE 200/5
     Route: 065
     Dates: start: 20130426

REACTIONS (2)
  - Dyspnoea [Recovered/Resolved]
  - Anaphylactic reaction [Unknown]

NARRATIVE: CASE EVENT DATE: 20130611
